FAERS Safety Report 17169164 (Version 1)
Quarter: 2019Q4

REPORT INFORMATION
  Report Type: Spontaneous
  Country: US (occurrence: US)
  Receive Date: 20191217
  Receipt Date: 20191217
  Transmission Date: 20200122
  Serious: No
  Sender: FDA-Public Use
  Company Number: None

PATIENT
  Age: 56 Year
  Sex: Female

DRUGS (9)
  1. FLUTICASONE SPR 50MCG [Concomitant]
     Active Substance: FLUTICASONE
     Dates: start: 20191124
  2. CYANOCOBALAM INJ 1000MCG [Concomitant]
     Dates: start: 20190312
  3. SPRAVATO [Suspect]
     Active Substance: ESKETAMINE
     Indication: MAJOR DEPRESSION
     Dosage: ?          OTHER FREQUENCY:TWICE WEEKLY;?
     Route: 045
     Dates: start: 20191106
  4. VENLAFAXINE CAP 150MG ER [Concomitant]
     Dates: start: 20191211
  5. PROGESTERONE CAP 200MG [Concomitant]
  6. QUETIAPINE TAB 100MG [Concomitant]
     Dates: start: 20191211
  7. VRAYLAR CAP 1.5MG [Concomitant]
     Dates: start: 20191212
  8. ATORVASTATIN TAB 20MG [Concomitant]
     Dates: start: 20190909
  9. ESTRADIOL DIS 0.05MG [Concomitant]
     Dates: start: 20191103

REACTIONS (1)
  - Suicidal ideation [None]

NARRATIVE: CASE EVENT DATE: 20191217
